FAERS Safety Report 17117301 (Version 2)
Quarter: 2020Q1

REPORT INFORMATION
  Report Type: Spontaneous
  Country: US (occurrence: US)
  Receive Date: 20191205
  Receipt Date: 20200115
  Transmission Date: 20200409
  Serious: Yes (Hospitalization, Other)
  Sender: FDA-Public Use
  Company Number: US-ASTRAZENECA-2019SF71152

PATIENT
  Age: 60 Year
  Sex: Male
  Weight: 95.3 kg

DRUGS (10)
  1. PULMICORT FLEXHALER [Suspect]
     Active Substance: BUDESONIDE
     Indication: ASTHMA
     Dosage: 180.0UG UNKNOWN
     Route: 055
     Dates: start: 2018
  2. OMEPRAZOLE. [Suspect]
     Active Substance: OMEPRAZOLE
     Indication: GASTROOESOPHAGEAL REFLUX DISEASE
     Route: 048
  3. KEPPRA [Concomitant]
     Active Substance: LEVETIRACETAM
     Route: 048
     Dates: start: 201904
  4. ADVAIR HFA [Concomitant]
     Active Substance: FLUTICASONE PROPIONATE\SALMETEROL XINAFOATE
     Indication: ASTHMA
     Route: 055
  5. MONTELUKAST [Concomitant]
     Active Substance: MONTELUKAST SODIUM
     Indication: ASTHMA
     Route: 048
  6. ASMANEX [Concomitant]
     Active Substance: MOMETASONE FUROATE
     Indication: ASTHMA
     Route: 055
  7. FEXOFENADINE [Concomitant]
     Active Substance: FEXOFENADINE HYDROCHLORIDE
     Indication: HYPERSENSITIVITY
     Route: 048
  8. TAURINE [Concomitant]
     Active Substance: TAURINE
     Route: 048
  9. ALFUZOSIN [Concomitant]
     Active Substance: ALFUZOSIN
     Indication: URINARY RETENTION
     Route: 048
  10. SUDAFED [Concomitant]
     Active Substance: PSEUDOEPHEDRINE HYDROCHLORIDE
     Indication: MIGRAINE
     Dosage: 30.0MG AS REQUIRED
     Route: 048

REACTIONS (16)
  - Respiratory tract congestion [Not Recovered/Not Resolved]
  - Weight increased [Unknown]
  - Intentional device misuse [Unknown]
  - Nephrolithiasis [Unknown]
  - Pain [Unknown]
  - Circumstance or information capable of leading to medication error [Not Recovered/Not Resolved]
  - Stress [Unknown]
  - Sinus congestion [Unknown]
  - Hypersensitivity [Unknown]
  - Intentional product misuse [Not Recovered/Not Resolved]
  - Seizure [Unknown]
  - Device failure [Unknown]
  - Influenza [Recovered/Resolved]
  - Migraine [Unknown]
  - Nasopharyngitis [Unknown]
  - Feeling abnormal [Unknown]

NARRATIVE: CASE EVENT DATE: 2018
